FAERS Safety Report 7704015-7 (Version None)
Quarter: 2011Q3

REPORT INFORMATION
  Report Type: 
  Country: None (occurrence: None)
  Receive Date: 20110725
  Receipt Date: 20110415
  Transmission Date: 20111222
  Serious: Yes (Other)
  Sender: FDA-Public Use
  Company Number: 2011SP017448

PATIENT
  Sex: Female

DRUGS (1)
  1. DULERA ORAL INHALATION [Suspect]
     Indication: PRODUCT USED FOR UNKNOWN INDICATION

REACTIONS (3)
  - THROAT IRRITATION [None]
  - TACHYCARDIA [None]
  - DIZZINESS [None]
